FAERS Safety Report 8991827 (Version 1)
Quarter: 2012Q4

REPORT INFORMATION
  Report Type: 
  Country: US (occurrence: US)
  Receive Date: 20121231
  Receipt Date: 20121231
  Transmission Date: 20130627
  Serious: Yes (Life-Threatening, Hospitalization)
  Sender: FDA-Public Use
  Company Number: CHPA2012US025906

PATIENT
  Sex: Female
  Weight: 75.74 kg

DRUGS (2)
  1. VOLTAREN GEL [Suspect]
     Dosage: 1 DF, TID
     Route: 061
  2. XARELTO [Suspect]
     Indication: CEREBROVASCULAR ACCIDENT PROPHYLAXIS
     Dosage: 20 mg, QD
     Route: 048

REACTIONS (1)
  - Haemorrhage intracranial [Unknown]
